FAERS Safety Report 21558195 (Version 1)
Quarter: 2022Q4

REPORT INFORMATION
  Report Type: Spontaneous
  Country: AU (occurrence: AU)
  Receive Date: 20221107
  Receipt Date: 20221107
  Transmission Date: 20230113
  Serious: Yes (Other)
  Sender: FDA-Public Use
  Company Number: AU-BAXTER-2022BAX023521

PATIENT
  Age: 62 Year
  Sex: Male

DRUGS (10)
  1. DOXORUBICIN [Suspect]
     Active Substance: DOXORUBICIN
     Indication: Diffuse large B-cell lymphoma stage IV
     Dosage: 6 CYCLES R-CHOP21 WITH COMPLETE REMISSION
     Route: 065
  2. CYCLOPHOSPHAMIDE [Suspect]
     Active Substance: CYCLOPHOSPHAMIDE
     Indication: Diffuse large B-cell lymphoma stage IV
     Dosage: 6 CYCLES R-CHOP21 WITH COMPLETE REMISSION
     Route: 065
  3. RITUXIMAB [Suspect]
     Active Substance: RITUXIMAB
     Indication: Diffuse large B-cell lymphoma stage IV
     Dosage: 6 CYCLES R-CHOP21 WITH COMPLETE REMISSION
     Route: 065
  4. PREDNISONE [Suspect]
     Active Substance: PREDNISONE
     Indication: Diffuse large B-cell lymphoma stage IV
     Dosage: 6 CYCLES R-CHOP21 WITH COMPLETE REMISSION
     Route: 065
  5. VINCRISTINE [Suspect]
     Active Substance: VINCRISTINE
     Indication: Diffuse large B-cell lymphoma stage IV
     Dosage: 6 CYCLES R-CHOP21 WITH COMPLETE REMISSION
     Route: 065
  6. METHOTREXATE [Suspect]
     Active Substance: METHOTREXATE
     Indication: Diffuse large B-cell lymphoma stage IV
     Dosage: 2 CYCLES HIGH DOSE WITH TEMOZOLMIDE
     Route: 065
  7. METHOTREXATE [Suspect]
     Active Substance: METHOTREXATE
     Dosage: 3RD DOSE WITH CONCURRENT CYTARABINE AND THIOTEPA (MATRIX PROTOCOL)
     Route: 065
  8. TEMOZOLOMIDE [Suspect]
     Active Substance: TEMOZOLOMIDE
     Indication: Diffuse large B-cell lymphoma stage IV
     Dosage: WITH 2 CYCLES HIGH DOSE METHOTREXATE
     Route: 065
  9. CYTARABINE [Suspect]
     Active Substance: CYTARABINE
     Indication: Diffuse large B-cell lymphoma stage IV
     Dosage: WITH METHOTREXATE 3RD DOSE AND THIOTEPA (MATRIX PROTOCOL)
     Route: 065
  10. THIOTEPA [Suspect]
     Active Substance: THIOTEPA
     Indication: Diffuse large B-cell lymphoma stage IV
     Dosage: (MATRIX PROTOCOL) WITH METHOTREXATE 3RD DOSE AND WITH CONCURRENT CYTARABINE
     Route: 065

REACTIONS (7)
  - B-cell lymphoma recurrent [Unknown]
  - B-cell lymphoma refractory [Unknown]
  - Non-Hodgkin^s lymphoma metastatic [Unknown]
  - Central nervous system lymphoma [Unknown]
  - Disease progression [Unknown]
  - Pneumonia fungal [Unknown]
  - Therapy non-responder [Unknown]

NARRATIVE: CASE EVENT DATE: 20220801
